FAERS Safety Report 7534786-4 (Version None)
Quarter: 2011Q2

REPORT INFORMATION
  Report Type: 
  Country: None (occurrence: None)
  Receive Date: 20110609
  Receipt Date: 20080815
  Transmission Date: 20111010
  Serious: Yes (Death, Hospitalization, Other)
  Sender: FDA-Public Use
  Company Number: PHHY2008CA12351

PATIENT
  Sex: Male

DRUGS (14)
  1. COMTAN [Concomitant]
     Dosage: 200 MG, UNK
  2. CLOZAPINE [Suspect]
     Indication: HALLUCINATION
     Dosage: 25 MG, QHS
     Route: 048
     Dates: start: 20050415, end: 20080505
  3. CLONAZEPAM [Concomitant]
     Dosage: 0.25 MG, QHS
  4. EXELON [Concomitant]
     Dosage: 6 MG, BID
  5. VITAMIN B-12 [Concomitant]
  6. AMATINE [Concomitant]
     Dosage: 5 MG, TID
  7. REMERON [Concomitant]
     Dosage: 15 MG, QHS
  8. PANTOPRAZOLE SODIUM [Concomitant]
  9. SINEMET [Concomitant]
     Dosage: 1.5 DF, QID
  10. FLORINEF [Concomitant]
     Dosage: 0.05 MG, UNK
  11. SINEMET [Concomitant]
     Dosage: 1 DF, QID
  12. ANTIBIOTICS [Concomitant]
  13. SINEMET CR [Concomitant]
     Dosage: UNK
  14. SENOKOT [Concomitant]

REACTIONS (9)
  - COUGH [None]
  - DYSPNOEA [None]
  - HYPOTENSION [None]
  - DYSPHAGIA [None]
  - PNEUMONIA ASPIRATION [None]
  - HYPERTHERMIA [None]
  - SOMNOLENCE [None]
  - PARKINSON'S DISEASE [None]
  - DEATH [None]
